FAERS Safety Report 19666659 (Version 1)
Quarter: 2021Q3

REPORT INFORMATION
  Report Type: Spontaneous
  Country: PL (occurrence: PL)
  Receive Date: 20210806
  Receipt Date: 20210806
  Transmission Date: 20211014
  Serious: Yes (Hospitalization)
  Sender: FDA-Public Use
  Company Number: PL-TELIGENT, INC-20210800073

PATIENT

DRUGS (1)
  1. GENTAMICIN UNSPECIFIED [Suspect]
     Active Substance: GENTAMICIN
     Indication: RASH PUSTULAR
     Dosage: 80 MILLIGRAM, BID (THREE WEEKS)
     Route: 042
     Dates: start: 2011

REACTIONS (1)
  - Inner ear disorder [Unknown]

NARRATIVE: CASE EVENT DATE: 2011
